FAERS Safety Report 19802606 (Version 1)
Quarter: 2021Q3

REPORT INFORMATION
  Report Type: Spontaneous
  Country: US (occurrence: US)
  Receive Date: 20210905
  Receipt Date: 20210905
  Transmission Date: 20211014
  Serious: Yes (Disabling)
  Sender: FDA-Public Use
  Company Number: None

PATIENT
  Age: 32 Year
  Sex: Female

DRUGS (1)
  1. FECAL MATTER TRANSPLANT [Suspect]
     Active Substance: FECAL MICROBIOTA

REACTIONS (3)
  - Illness [None]
  - Pain [None]
  - Constipation [None]

NARRATIVE: CASE EVENT DATE: 20131220
